FAERS Safety Report 26000550 (Version 1)
Quarter: 2025Q4

REPORT INFORMATION
  Report Type: Spontaneous
  Country: US (occurrence: US)
  Receive Date: 20251105
  Receipt Date: 20251105
  Transmission Date: 20260117
  Serious: No
  Sender: ROCHE
  Company Number: US-ROCHE-10000422459

PATIENT
  Sex: Female

DRUGS (2)
  1. XOLAIR [Suspect]
     Active Substance: OMALIZUMAB
     Indication: Asthma
     Dosage: TOTAL DOSE 375 MG EVERY 2 WEEKS, SUBCUTANEOUS.?STRENGTH: 150 MG/ML
     Route: 058
     Dates: start: 201910
  2. XOLAIR [Suspect]
     Active Substance: OMALIZUMAB
     Dosage: TOTAL DOSE 375 MG EVERY 2 WEEKS, SUBCUTANEOUS??STRENGTH: 75 MG/0.5ML
     Route: 058
     Dates: start: 201910

REACTIONS (2)
  - No adverse event [Unknown]
  - Drug ineffective [Unknown]
